FAERS Safety Report 4526320-8 (Version None)
Quarter: 2004Q4

REPORT INFORMATION
  Report Type: 
  Country: None (occurrence: None)
  Receive Date: 20041210
  Receipt Date: 20041201
  Transmission Date: 20050328
  Serious: Yes (Other)
  Sender: FDA-Public Use
  Company Number: 2003-01-0208

PATIENT

DRUGS (3)
  1. REBETOL [Suspect]
     Indication: HEPATITIS C
     Dosage: ORAL
     Route: 048
  2. VIRAFERONPEG [Suspect]
     Indication: HEPATITIS C
  3. AMANTADINE OR PLACEBO (BLINDED STUDY DRUG) [Suspect]
     Indication: HEPATITIS C

REACTIONS (4)
  - DRUG EXPOSURE DURING PREGNANCY [None]
  - MENTAL RETARDATION SEVERITY UNSPECIFIED [None]
  - PSYCHOMOTOR RETARDATION [None]
  - TRANSMISSION OF DRUG VIA SEMEN [None]
